FAERS Safety Report 11491490 (Version 1)
Quarter: 2015Q3

REPORT INFORMATION
  Report Type: Spontaneous
  Country: JP (occurrence: JP)
  Receive Date: 20150910
  Receipt Date: 20150910
  Transmission Date: 20151125
  Serious: Yes (Death)
  Sender: FDA-Public Use
  Company Number: JP-MALLINCKRODT-T201504277

PATIENT
  Age: 52 Year
  Sex: Male

DRUGS (13)
  1. METHADONE [Suspect]
     Active Substance: METHADONE HYDROCHLORIDE
     Dosage: 20 MG DAILY DOSE
     Dates: start: 20150601, end: 20150605
  2. METHADONE [Suspect]
     Active Substance: METHADONE HYDROCHLORIDE
     Dosage: 10 MG (30 MG DAILY DOSE)
     Route: 050
     Dates: start: 20150611, end: 20150615
  3. ALBUMINE [Concomitant]
     Dosage: 2 G
     Route: 050
     Dates: end: 20150527
  4. METHADONE [Suspect]
     Active Substance: METHADONE HYDROCHLORIDE
     Dosage: 15 MG (45 MG DAILY DOSE)
     Route: 050
     Dates: start: 20150623, end: 20150629
  5. METHADONE [Suspect]
     Active Substance: METHADONE HYDROCHLORIDE
     Indication: CANCER PAIN
     Dosage: 5 MG (15 MG DAILY DOSE)
     Route: 050
     Dates: start: 20150526, end: 20150531
  6. METHADONE [Suspect]
     Active Substance: METHADONE HYDROCHLORIDE
     Dosage: 40 MG DAILY DOSE
     Route: 050
     Dates: start: 20150616, end: 20150622
  7. OPSO [Concomitant]
     Active Substance: MORPHINE HYDROCHLORIDE
     Dosage: 10 MG,P.R.N.
     Route: 050
     Dates: start: 20150526
  8. LOXOPROFEN [Concomitant]
     Active Substance: LOXOPROFEN
     Indication: ANALGESIC THERAPY
     Dosage: 180 MG
     Route: 050
     Dates: end: 20150720
  9. FERROMIA [Concomitant]
     Active Substance: FERROUS CITRATE
     Dosage: 180 MG
     Route: 050
     Dates: end: 20150715
  10. THYRADIN S [Concomitant]
     Active Substance: LEVOTHYROXINE SODIUM
     Dosage: 50 MCG
     Route: 050
     Dates: end: 20150527
  11. METHADONE [Suspect]
     Active Substance: METHADONE HYDROCHLORIDE
     Dosage: 25 MG DAILY DOSE
     Route: 050
     Dates: start: 20150606, end: 20150610
  12. METHADONE [Suspect]
     Active Substance: METHADONE HYDROCHLORIDE
     Dosage: 20 MG (60 MG DAILY DOSE)
     Route: 050
     Dates: start: 20150630, end: 20150720
  13. THYRADIN S [Concomitant]
     Active Substance: LEVOTHYROXINE SODIUM
     Dosage: 75 MCG
     Route: 050
     Dates: start: 20150528, end: 20150720

REACTIONS (2)
  - Tracheal stenosis [Not Recovered/Not Resolved]
  - Glottis carcinoma [Fatal]

NARRATIVE: CASE EVENT DATE: 20150618
